FAERS Safety Report 5379280-4 (Version None)
Quarter: 2007Q3

REPORT INFORMATION
  Report Type: 
  Country: None (occurrence: None)
  Receive Date: 20070705
  Receipt Date: 20070625
  Transmission Date: 20080115
  Serious: Yes (Disabling)
  Sender: FDA-Public Use
  Company Number: DK-SHR-DK-2007-004316

PATIENT
  Age: 39 Year
  Sex: Female

DRUGS (2)
  1. LEVONORGESTREL [Suspect]
     Indication: CONTRACEPTION
     Dosage: 20 A?G/DAY, CONT
     Route: 015
     Dates: start: 20061001, end: 20070213
  2. IBUMETIN [Suspect]
     Dates: start: 20061201, end: 20061201

REACTIONS (1)
  - URTICARIA [None]
